FAERS Safety Report 6651483-8 (Version None)
Quarter: 2010Q1

REPORT INFORMATION
  Report Type: 
  Country: None (occurrence: None)
  Receive Date: 20100325
  Receipt Date: 20100319
  Transmission Date: 20100710
  Serious: Yes (Other)
  Sender: FDA-Public Use
  Company Number: CN-ROCHE-692378

PATIENT
  Age: 54 Year
  Sex: Male

DRUGS (2)
  1. XELODA [Suspect]
     Indication: RECTAL CANCER
     Dosage: TOTAL DURATION AS 8 THERAPY CYCLES.
     Route: 048
  2. OXALIPLATIN [Concomitant]
     Indication: RECTAL CANCER

REACTIONS (2)
  - RECTAL CANCER METASTATIC [None]
  - RECURRENT CANCER [None]
